FAERS Safety Report 23270719 (Version 2)
Quarter: 2024Q4

REPORT INFORMATION
  Report Type: Other
  Country: CA (occurrence: CA)
  Receive Date: 20231207
  Receipt Date: 20241104
  Transmission Date: 20250115
  Serious: Yes (Death, Other)
  Sender: APOTEX
  Company Number: CA-APOTEX-2023AP017513

PATIENT
  Sex: Male

DRUGS (1)
  1. FINGOLIMOD HYDROCHLORIDE [Suspect]
     Active Substance: FINGOLIMOD HYDROCHLORIDE
     Indication: Neutropenia
     Dosage: 0.5 MILLIGRAM, QD
     Route: 048
     Dates: start: 20200110

REACTIONS (1)
  - Multiple sclerosis [Fatal]
